FAERS Safety Report 18832358 (Version 3)
Quarter: 2021Q2

REPORT INFORMATION
  Report Type: Spontaneous
  Country: CA (occurrence: CA)
  Receive Date: 20210201
  Receipt Date: 20210620
  Transmission Date: 20210717
  Serious: Yes (Other)
  Sender: FDA-Public Use
  Company Number: CA-JNJFOC-20210144390

PATIENT
  Age: 75 Year
  Sex: Female
  Weight: 83 kg

DRUGS (14)
  1. PANTOLOC [PANTOPRAZOLE] [Concomitant]
     Active Substance: PANTOPRAZOLE SODIUM
     Indication: DYSPEPSIA
     Route: 065
  2. PENTASA [Concomitant]
     Active Substance: MESALAMINE
     Route: 065
  3. ASACOL [Concomitant]
     Active Substance: MESALAMINE
     Route: 065
  4. REMICADE [Suspect]
     Active Substance: INFLIXIMAB
     Indication: CROHN^S DISEASE
     Route: 042
  5. LOPERAMIDE [Concomitant]
     Active Substance: LOPERAMIDE
     Route: 065
  6. WELLBUTRIN [Concomitant]
     Active Substance: BUPROPION HYDROCHLORIDE
     Dosage: TABLET (EXTENDED RELEASE)
     Route: 065
  7. REMICADE [Suspect]
     Active Substance: INFLIXIMAB
     Route: 042
  8. ATORVASTATIN CALCIUM. [Concomitant]
     Active Substance: ATORVASTATIN CALCIUM
     Indication: HYPERLIPIDAEMIA
     Route: 065
  9. CIPRALEX [Concomitant]
     Active Substance: ESCITALOPRAM OXALATE
     Route: 065
  10. OLMESARTAN [Concomitant]
     Active Substance: OLMESARTAN
     Route: 065
  11. REMICADE [Suspect]
     Active Substance: INFLIXIMAB
     Route: 042
  12. ASACOL [Concomitant]
     Active Substance: MESALAMINE
     Dosage: TABLET (ENTERIC COATED)
     Route: 065
  13. IRON [Concomitant]
     Active Substance: IRON
     Route: 065
  14. QUETIAPINE FUMARATE. [Concomitant]
     Active Substance: QUETIAPINE FUMARATE
     Route: 065

REACTIONS (12)
  - Condition aggravated [Not Recovered/Not Resolved]
  - Oxygen saturation decreased [Unknown]
  - Blood pressure diastolic decreased [Not Recovered/Not Resolved]
  - Therapeutic response shortened [Not Recovered/Not Resolved]
  - Off label use [Not Recovered/Not Resolved]
  - Weight increased [Not Recovered/Not Resolved]
  - Decreased appetite [Unknown]
  - Malaise [Not Recovered/Not Resolved]
  - Pyoderma [Unknown]
  - Blood pressure increased [Not Recovered/Not Resolved]
  - Intentional product use issue [Not Recovered/Not Resolved]
  - Drug ineffective [Unknown]
